FAERS Safety Report 10368044 (Version 1)
Quarter: 2014Q3

REPORT INFORMATION
  Report Type: Spontaneous
  Country: GB (occurrence: None)
  Receive Date: 20140805
  Receipt Date: 20140805
  Transmission Date: 20150326
  Serious: Yes (Hospitalization)
  Sender: FDA-Public Use
  Company Number: FK201403087

PATIENT
  Age: 62 Year
  Sex: Male

DRUGS (6)
  1. DORBANEX (DORBANEX) [Concomitant]
  2. ORAMORPH (MORPHINE SULFATE PENTAHYDRATE) [Concomitant]
  3. ABRAXANE [Suspect]
     Active Substance: PACLITAXEL
     Indication: PANCREATIC CARCINOMA METASTATIC
     Dosage: 225MG, IINTRAVENOUS
     Dates: start: 20140526
  4. METOCLOPRAMIDE (METOCLOPRAMIDE) [Concomitant]
     Active Substance: METOCLOPRAMIDE
  5. MST CONTINUS (MORPHINE SULFATE) [Concomitant]
  6. GEMCITABINE [Suspect]
     Active Substance: GEMCITABINE\GEMCITABINE HYDROCHLORIDE
     Indication: PANCREATIC CARCINOMA METASTATIC
     Dates: start: 20140526

REACTIONS (3)
  - Pain in extremity [None]
  - Cerebrovascular accident [None]
  - Hypokinesia [None]

NARRATIVE: CASE EVENT DATE: 20140527
